FAERS Safety Report 6426734-5 (Version None)
Quarter: 2009Q4

REPORT INFORMATION
  Report Type: 
  Country: None (occurrence: None)
  Receive Date: 20091103
  Receipt Date: 20091103
  Transmission Date: 20100525
  Serious: No
  Sender: FDA-Public Use
  Company Number: None

PATIENT
  Age: 48 Year

DRUGS (2)
  1. MORPHINE [Suspect]
     Indication: PAIN
     Dosage: 24 AVERAGE DOSE MG EVERY DAY PO
     Route: 048
     Dates: start: 20090306, end: 20090310
  2. MORPHINE [Suspect]
     Indication: PAIN
     Dosage: 24 AVERAGE DOSE MG EVERY DAY PO
     Route: 048
     Dates: start: 20090306, end: 20090310

REACTIONS (4)
  - BRADYCARDIA [None]
  - FATIGUE [None]
  - HEADACHE [None]
  - SEDATION [None]
